FAERS Safety Report 4360271-7 (Version None)
Quarter: 2004Q2

REPORT INFORMATION
  Report Type: 
  Country: None (occurrence: None)
  Receive Date: 20040514
  Receipt Date: 20040510
  Transmission Date: 20050107
  Serious: Yes (Other)
  Sender: FDA-Public Use
  Company Number: US-JNJFOC-20031006757

PATIENT
  Age: 59 Year
  Sex: Female
  Weight: 84.369 kg

DRUGS (12)
  1. CISAPRIDE (CISAPRIDE) [Suspect]
     Indication: GASTROOESOPHAGEAL REFLUX DISEASE
     Dosage: 20 MG, 4 IN 1 DAY, ORAL
     Route: 048
     Dates: start: 20031027, end: 20031030
  2. ALPRAZOLAM [Concomitant]
  3. CETIRIZINE HCL (CETIRIZINE) [Concomitant]
  4. LANSOPRAZOLE SR (LANSOPRAZOLE) [Concomitant]
  5. PRAVASTATIN SODIUM [Concomitant]
  6. RIZATRIPTAN (RIZATRIPTAN) [Concomitant]
  7. TOLMETIN SODIUM (TOLMETIN SODIUM) [Concomitant]
  8. LISINOPRIL [Concomitant]
  9. MULTIVITAMIN [Concomitant]
  10. VITAMIN E [Concomitant]
  11. GLUCOSAMINE (GLUCOSAMINE) [Concomitant]
  12. CEPHALEXIN [Concomitant]

REACTIONS (2)
  - ELECTROCARDIOGRAM QT CORRECTED INTERVAL PROLONGED [None]
  - ELECTROCARDIOGRAM QT PROLONGED [None]
